FAERS Safety Report 8929207 (Version 1)
Quarter: 2012Q4

REPORT INFORMATION
  Report Type: 
  Country: ES (occurrence: ES)
  Receive Date: 20121128
  Receipt Date: 20121128
  Transmission Date: 20130627
  Serious: Yes (Hospitalization, Other)
  Sender: FDA-Public Use
  Company Number: ES-ELI_LILLY_AND_COMPANY-ES201211004727

PATIENT
  Sex: Female

DRUGS (1)
  1. FORSTEO [Suspect]
     Dosage: UNK
     Dates: start: 20120309

REACTIONS (3)
  - Cardiac disorder [Unknown]
  - Arterial occlusive disease [Unknown]
  - Dyspnoea [Unknown]
